FAERS Safety Report 8322002-5 (Version None)
Quarter: 2012Q2

REPORT INFORMATION
  Report Type: 
  Country: None (occurrence: None)
  Receive Date: 20120430
  Receipt Date: 20120418
  Transmission Date: 20120825
  Serious: Yes (Hospitalization)
  Sender: FDA-Public Use
  Company Number: FR-VERTEX PHARMACEUTICALS INC.-000000000000000561

PATIENT
  Sex: Female
  Weight: 96 kg

DRUGS (8)
  1. ALPRAZOLAM [Concomitant]
     Dates: end: 20110801
  2. TELAPREVIR [Suspect]
     Indication: HEPATITIS C
     Dosage: DOSAGE FORM: TABLET
     Route: 048
     Dates: start: 20110506, end: 20110729
  3. ESCITALOPRAM [Concomitant]
     Indication: DEPRESSION
     Dates: end: 20110801
  4. RIBAVIRINE [Concomitant]
     Indication: HEPATITIS C
     Dosage: DOSAGE FORM: UNSPECIFIED
     Route: 065
     Dates: start: 20110506
  5. LITHIUM CARBONATE [Concomitant]
     Indication: AFFECTIVE DISORDER
     Dates: end: 20110801
  6. NEORECORMON [Concomitant]
     Indication: ANAEMIA
     Dates: start: 20110618
  7. MEPRONIZINE [Concomitant]
     Dates: end: 20110801
  8. PEGASYS [Concomitant]
     Indication: HEPATITIS C
     Dosage: DOSAGE FORM: UNSPECIFIED
     Route: 065
     Dates: start: 20110506

REACTIONS (1)
  - DIABETES MELLITUS [None]
